FAERS Safety Report 6902896-8 (Version None)
Quarter: 2010Q3

REPORT INFORMATION
  Report Type: 
  Country: None (occurrence: None)
  Receive Date: 20100803
  Receipt Date: 20080708
  Transmission Date: 20110219
  Serious: Yes (Other)
  Sender: FDA-Public Use
  Company Number: US-PFIZER INC-2008058591

PATIENT
  Sex: Female
  Weight: 167.27 kg

DRUGS (11)
  1. LYRICA [Suspect]
     Indication: NEURALGIA
     Dates: start: 20070101
  2. LYRICA [Suspect]
     Indication: FIBROMYALGIA
  3. DETROL LA [Concomitant]
  4. PREMARIN [Concomitant]
  5. SYNTHROID [Concomitant]
  6. LORTAB [Concomitant]
  7. ALL OTHER THERAPEUTIC PRODUCTS [Concomitant]
  8. ALBUTEROL [Concomitant]
  9. POTASSIUM CHLORIDE [Concomitant]
  10. NEURONTIN [Concomitant]
  11. IMITREX [Concomitant]

REACTIONS (15)
  - CELLULITIS [None]
  - DIARRHOEA [None]
  - DISCOMFORT [None]
  - DIZZINESS [None]
  - DRY MOUTH [None]
  - ERYTHEMA [None]
  - HEADACHE [None]
  - INCREASED APPETITE [None]
  - INFECTION [None]
  - MUSCLE SPASMS [None]
  - NAUSEA [None]
  - OEDEMA PERIPHERAL [None]
  - SLEEP DISORDER [None]
  - VISION BLURRED [None]
  - WEIGHT INCREASED [None]
